FAERS Safety Report 7729329-6 (Version None)
Quarter: 2011Q3

REPORT INFORMATION
  Report Type: 
  Country: None (occurrence: None)
  Receive Date: 20110906
  Receipt Date: 20110901
  Transmission Date: 20111222
  Serious: Yes (Death)
  Sender: FDA-Public Use
  Company Number: US-ASTELLAS-2011US005507

PATIENT
  Sex: Male

DRUGS (1)
  1. PROGRAF [Suspect]
     Indication: LUNG NEOPLASM MALIGNANT
     Dosage: 3.5 MG, UID/QD
     Route: 048
     Dates: start: 20010809, end: 20110101

REACTIONS (2)
  - OFF LABEL USE [None]
  - LUNG NEOPLASM MALIGNANT [None]
